FAERS Safety Report 9238476 (Version 2)
Quarter: 2013Q2

REPORT INFORMATION
  Report Type: Spontaneous
  Country: JP (occurrence: JP)
  Receive Date: 20130418
  Receipt Date: 20130514
  Transmission Date: 20140414
  Serious: Yes (Other)
  Sender: FDA-Public Use
  Company Number: JP-ELI_LILLY_AND_COMPANY-JP201304003237

PATIENT
  Sex: Female
  Weight: 48 kg

DRUGS (2)
  1. FORTEO [Suspect]
     Indication: OSTEOPOROSIS
     Dosage: 20 UG, QD
     Route: 058
     Dates: start: 20110816, end: 20111220
  2. ALOSENN                            /00476901/ [Concomitant]
     Dosage: UNK
     Route: 048
     Dates: start: 20090928, end: 20110816

REACTIONS (1)
  - Lung neoplasm malignant [Unknown]
